FAERS Safety Report 6912674-1 (Version None)
Quarter: 2010Q3

REPORT INFORMATION
  Report Type: 
  Country: None (occurrence: None)
  Receive Date: 20100806
  Receipt Date: 20080915
  Transmission Date: 20110219
  Serious: No
  Sender: FDA-Public Use
  Company Number: US-PFIZER INC-2008078290

PATIENT
  Sex: Female

DRUGS (7)
  1. DILANTIN [Suspect]
     Indication: CONVULSION
     Dates: start: 20080912
  2. AMBIEN [Concomitant]
  3. CIPROFLOXACIN [Concomitant]
  4. PROMETHAZINE [Concomitant]
  5. PROTONIX [Concomitant]
  6. ALL OTHER THERAPEUTIC PRODUCTS [Concomitant]
  7. EUGYNON [Concomitant]

REACTIONS (2)
  - AGITATION [None]
  - AMNESIA [None]
